FAERS Safety Report 9835007 (Version 2)
Quarter: 2014Q1

REPORT INFORMATION
  Report Type: Spontaneous
  Country: JP (occurrence: JP)
  Receive Date: 20140122
  Receipt Date: 20140129
  Transmission Date: 20141002
  Serious: Yes (Other)
  Sender: FDA-Public Use
  Company Number: JP-PFIZER INC-2014019912

PATIENT
  Age: 59 Year
  Sex: Female

DRUGS (4)
  1. CHAMPIX [Suspect]
     Indication: SMOKING CESSATION THERAPY
     Dosage: UNK
     Route: 048
     Dates: start: 20131209, end: 201312
  2. ATORVASTATIN [Concomitant]
     Dosage: UNK
  3. THRENOFEN [Concomitant]
     Dosage: UNK
  4. KORISPAR [Concomitant]
     Dosage: UNK

REACTIONS (3)
  - Loss of consciousness [Unknown]
  - Fall [Unknown]
  - Jaw fracture [Unknown]
